FAERS Safety Report 16704315 (Version 1)
Quarter: 2019Q3

REPORT INFORMATION
  Report Type: Spontaneous
  Country: IN (occurrence: IN)
  Receive Date: 20190814
  Receipt Date: 20190814
  Transmission Date: 20191004
  Serious: Yes (Other)
  Sender: FDA-Public Use
  Company Number: IN-009507513-1908IND002356

PATIENT
  Age: 58 Year
  Sex: Male
  Weight: 73.5 kg

DRUGS (1)
  1. JANUMET [Suspect]
     Active Substance: METFORMIN HYDROCHLORIDE\SITAGLIPTIN PHOSPHATE
     Indication: TYPE 2 DIABETES MELLITUS
     Dosage: UNK
     Route: 048
     Dates: start: 2014, end: 201907

REACTIONS (2)
  - Meniere^s disease [Recovering/Resolving]
  - CYP3A4 polymorphism [Recovered/Resolved]

NARRATIVE: CASE EVENT DATE: 2014
